FAERS Safety Report 6690175-6 (Version None)
Quarter: 2010Q2

REPORT INFORMATION
  Report Type: 
  Country: None (occurrence: None)
  Receive Date: 20100421
  Receipt Date: 20100411
  Transmission Date: 20101027
  Serious: Yes (Hospitalization, Other)
  Sender: FDA-Public Use
  Company Number: US-AMGEN-QUU405685

PATIENT
  Sex: Female

DRUGS (4)
  1. ENBREL [Suspect]
     Indication: RHEUMATOID ARTHRITIS
     Route: 058
     Dates: start: 20080501
  2. ENBREL [Suspect]
     Indication: PSORIATIC ARTHROPATHY
  3. ENBREL [Suspect]
     Indication: PSORIASIS
  4. ACITRETIN [Concomitant]

REACTIONS (5)
  - AUTOIMMUNE DISORDER [None]
  - BREAST CANCER METASTATIC [None]
  - FIBROMYALGIA [None]
  - NAUSEA [None]
  - PSORIASIS [None]
